FAERS Safety Report 6882764-0 (Version None)
Quarter: 2010Q3

REPORT INFORMATION
  Report Type: 
  Country: None (occurrence: None)
  Receive Date: 20100729
  Receipt Date: 20100720
  Transmission Date: 20110219
  Serious: Yes (Other)
  Sender: FDA-Public Use
  Company Number: DK-PFIZER INC-2009241738

PATIENT
  Age: 62 Year
  Sex: Female
  Weight: 64 kg

DRUGS (3)
  1. ESTRING [Suspect]
     Indication: VULVOVAGINAL DRYNESS
     Dosage: 7.5 UG, EVERY 3 MONTHS
     Route: 067
     Dates: start: 20081207, end: 20090515
  2. ELTROXIN [Suspect]
     Indication: MYXOEDEMA
     Dosage: 125 UG, 1X/DAY
     Route: 048
     Dates: start: 20090210
  3. ALENDRONIC ACID [Suspect]
     Indication: OSTEOPOROSIS
     Dosage: 70 MG, WEEKLY
     Route: 048
     Dates: start: 20050710, end: 20090515

REACTIONS (7)
  - ARTHRALGIA [None]
  - DECREASED APPETITE [None]
  - FATIGUE [None]
  - MYALGIA [None]
  - MYXOEDEMA [None]
  - OEDEMA PERIPHERAL [None]
  - VARICOSE VEIN [None]
